FAERS Safety Report 15709523 (Version 1)
Quarter: 2018Q4

REPORT INFORMATION
  Report Type: Spontaneous
  Country: GB (occurrence: GB)
  Receive Date: 20181211
  Receipt Date: 20181211
  Transmission Date: 20190205
  Serious: Yes (Other)
  Sender: FDA-Public Use
  Company Number: GB-PFIZER INC-2018503661

PATIENT
  Age: 6 Decade
  Sex: Female
  Weight: 51.71 kg

DRUGS (2)
  1. LEVOTHYROXINE. [Suspect]
     Active Substance: LEVOTHYROXINE
     Dosage: UNK
  2. PHENYTOIN SODIUM. [Suspect]
     Active Substance: PHENYTOIN SODIUM
     Indication: TEMPORAL LOBE EPILEPSY
     Dosage: 300 MG, UNK
     Route: 048
     Dates: start: 1986

REACTIONS (8)
  - Onychoclasis [Unknown]
  - Depression [Unknown]
  - Memory impairment [Unknown]
  - Blood thyroid stimulating hormone increased [Unknown]
  - Labelled drug-drug interaction medication error [Unknown]
  - Abnormal loss of weight [Not Recovered/Not Resolved]
  - Thyroxine increased [Unknown]
  - Fatigue [Not Recovered/Not Resolved]

NARRATIVE: CASE EVENT DATE: 2012
